FAERS Safety Report 20855199 (Version 1)
Quarter: 2022Q2

REPORT INFORMATION
  Report Type: Spontaneous
  Country: US (occurrence: US)
  Receive Date: 20220520
  Receipt Date: 20220520
  Transmission Date: 20220721
  Serious: Yes (Other)
  Sender: FDA-Public Use
  Company Number: US-SAGENT PHARMACEUTICALS-2022SAG001016

PATIENT

DRUGS (4)
  1. LEUCOVORIN CALCIUM [Suspect]
     Active Substance: LEUCOVORIN CALCIUM
     Indication: Rectal cancer
     Dosage: UNK
  2. FLUOROURACIL [Suspect]
     Active Substance: FLUOROURACIL
     Indication: Rectal cancer
     Dosage: UNK
  3. OXALIPLATIN [Suspect]
     Active Substance: OXALIPLATIN
     Indication: Rectal cancer
     Dosage: 85 MG/M2, UNK
  4. OXALIPLATIN [Suspect]
     Active Substance: OXALIPLATIN
     Dosage: 75 MG/M2, UNK

REACTIONS (4)
  - Myositis [Unknown]
  - Peripheral sensorimotor neuropathy [Unknown]
  - Oedema peripheral [Unknown]
  - Fall [Unknown]
